FAERS Safety Report 9220384 (Version 2)
Quarter: 2013Q2

REPORT INFORMATION
  Report Type: Spontaneous
  Country: TR (occurrence: TR)
  Receive Date: 20130409
  Receipt Date: 20130518
  Transmission Date: 20140414
  Serious: Yes (Other)
  Sender: FDA-Public Use
  Company Number: TR-ROCHE-1210657

PATIENT
  Age: 60 Year
  Sex: Male

DRUGS (2)
  1. ACTILYSE [Suspect]
     Indication: BASILAR ARTERY THROMBOSIS
     Route: 042
  2. ASPIRIN [Suspect]
     Indication: BASILAR ARTERY THROMBOSIS
     Route: 065

REACTIONS (2)
  - Hemiparesis [Recovered/Resolved]
  - Inappropriate affect [Not Recovered/Not Resolved]
